FAERS Safety Report 4814750-6 (Version None)
Quarter: 2005Q4

REPORT INFORMATION
  Report Type: 
  Country: None (occurrence: None)
  Receive Date: 20051028
  Receipt Date: 20041220
  Transmission Date: 20060501
  Serious: No
  Sender: FDA-Public Use
  Company Number: US-GLAXOSMITHKLINE-A0538060A

PATIENT
  Age: 51 Year
  Sex: Female
  Weight: 68 kg

DRUGS (14)
  1. ADVAIR DISKUS 100/50 [Suspect]
     Indication: DRUG USE FOR UNKNOWN INDICATION
     Dosage: 1PUFF TWICE PER DAY
     Route: 055
     Dates: start: 20040601
  2. ALBUTEROL [Concomitant]
     Dosage: 2PUFF THREE TIMES PER DAY
  3. ALLEGRA [Concomitant]
     Dosage: 60MG TWICE PER DAY
     Route: 048
  4. ENTEX LA [Concomitant]
  5. NASALCROM [Concomitant]
     Dosage: 1SPR TWICE PER DAY
  6. SINGULAIR [Concomitant]
     Dosage: 10MG PER DAY
     Dates: start: 20040701
  7. INTAL [Concomitant]
     Dosage: 2PUFF THREE TIMES PER DAY
  8. CYTOMEL [Concomitant]
     Dosage: 10MCG PER DAY
  9. LEVOXYL [Concomitant]
     Dosage: 100MCG PER DAY
  10. ARMOUR [Concomitant]
     Dosage: 30MG PER DAY
  11. DYAZIDE [Concomitant]
  12. ASPIRIN [Concomitant]
     Dosage: 81MG PER DAY
  13. TRETINOIN [Concomitant]
  14. FLONASE [Concomitant]
     Route: 045

REACTIONS (3)
  - DRUG INEFFECTIVE [None]
  - ILL-DEFINED DISORDER [None]
  - PHARMACEUTICAL PRODUCT COMPLAINT [None]
